FAERS Safety Report 5858125-X (Version None)
Quarter: 2008Q3

REPORT INFORMATION
  Report Type: 
  Country: None (occurrence: None)
  Receive Date: 20080822
  Receipt Date: 20080806
  Transmission Date: 20090109
  Serious: Yes (Death, Other)
  Sender: FDA-Public Use
  Company Number: 2008BI017015

PATIENT
  Age: 58 Year
  Sex: Female

DRUGS (5)
  1. ZEVALIN [Suspect]
     Indication: B-CELL LYMPHOMA RECURRENT
     Dosage: 0.3 MCI/KG; 1X; IVBOL
     Route: 040
  2. RITUXMAB [Concomitant]
  3. DEXCHORPHENIRAMINE [Concomitant]
  4. METHYLPREDNISOLONE [Concomitant]
  5. ACETAMINOPHEN [Concomitant]

REACTIONS (5)
  - BONE MARROW DISORDER [None]
  - DRUG TOXICITY [None]
  - NEUTROPENIA [None]
  - SEPTIC SHOCK [None]
  - THROMBOCYTOPENIA [None]
